FAERS Safety Report 10254367 (Version 2)
Quarter: 2014Q3

REPORT INFORMATION
  Report Type: Report from Study
  Country: CA (occurrence: CA)
  Receive Date: 20140624
  Receipt Date: 20140801
  Transmission Date: 20150326
  Serious: Yes (Hospitalization)
  Sender: FDA-Public Use
  Company Number: CA-UCBSA-2014002663

PATIENT
  Age: 72 Year
  Sex: Female
  Weight: 68 kg

DRUGS (8)
  1. CERTOLIZUMAB PEGOL RA [Suspect]
     Active Substance: CERTOLIZUMAB PEGOL
     Indication: RHEUMATOID ARTHRITIS
     Dosage: 400 MG, EV 2 WEEKS(QOW)
     Route: 058
     Dates: start: 20130408, end: 20130506
  2. METHOTREXATE [Concomitant]
     Active Substance: METHOTREXATE
     Indication: RHEUMATOID ARTHRITIS
     Dosage: 25 MG, WEEKLY (QW)
     Route: 058
     Dates: start: 2009
  3. FOLIC ACID. [Concomitant]
     Active Substance: FOLIC ACID
     Indication: RHEUMATOID ARTHRITIS
     Dosage: 5 MG, UNK
     Route: 048
     Dates: start: 2009
  4. AVALIDE [Concomitant]
     Active Substance: HYDROCHLOROTHIAZIDE\IRBESARTAN
     Indication: HYPERTENSION
     Dosage: 300/12.5 MG, ONCE DAILY (QD)
     Route: 048
  5. DEXILANT [Concomitant]
     Active Substance: DEXLANSOPRAZOLE
     Indication: PROPHYLAXIS
     Dosage: 40 MG, ONCE DAILY (QD)
     Route: 048
  6. PREDNISONE. [Concomitant]
     Active Substance: PREDNISONE
     Indication: RHEUMATOID ARTHRITIS
     Dosage: 2.5 MG, ONCE DAILY (QD)
     Route: 048
     Dates: start: 201301
  7. NEUROTIN [Concomitant]
     Indication: PAIN
     Dosage: UNK MG, ONCE DAILY (QD)
     Route: 048
  8. CERTOLIZUMAB PEGOL RA [Suspect]
     Active Substance: CERTOLIZUMAB PEGOL
     Dosage: 200 MG/KG, EV 2 WEEKS(QOW)
     Route: 058
     Dates: start: 20130520

REACTIONS (1)
  - Kidney infection [Recovered/Resolved with Sequelae]

NARRATIVE: CASE EVENT DATE: 20140528
